FAERS Safety Report 8696137 (Version 2)
Quarter: 2013Q4

REPORT INFORMATION
  Report Type: Report from Study
  Country: US (occurrence: US)
  Receive Date: 20120801
  Receipt Date: 20131106
  Transmission Date: 20140711
  Serious: Yes (Other)
  Sender: FDA-Public Use
  Company Number: US-009507513-1207USA010860

PATIENT
  Sex: 0

DRUGS (1)
  1. PEGINTRON [Suspect]
     Indication: GLIOMA
     Dosage: 0.3 MICROGRAM PER KILOGRAM, QW
     Route: 058

REACTIONS (1)
  - Toxicity to various agents [Unknown]
